FAERS Safety Report 6805211-3 (Version None)
Quarter: 2010Q2

REPORT INFORMATION
  Report Type: 
  Country: None (occurrence: None)
  Receive Date: 20100628
  Receipt Date: 20070911
  Transmission Date: 20101027
  Serious: No
  Sender: FDA-Public Use
  Company Number: US-PFIZER INC-2007077148

PATIENT
  Sex: Female
  Weight: 50 kg

DRUGS (1)
  1. XALATAN [Suspect]
     Indication: GLAUCOMA
     Dates: start: 20070904, end: 20070909

REACTIONS (4)
  - EYE OEDEMA [None]
  - EYE PAIN [None]
  - HYPERSENSITIVITY [None]
  - OCULAR HYPERAEMIA [None]
